FAERS Safety Report 6317603-X (Version None)
Quarter: 2009Q3

REPORT INFORMATION
  Report Type: 
  Country: None (occurrence: None)
  Receive Date: 20090821
  Receipt Date: 20090819
  Transmission Date: 20100115
  Serious: Yes (Hospitalization)
  Sender: FDA-Public Use
  Company Number: US-B.I. PHARMACEUTICALS,INC./RIDGEFIELD-2009-BP-02761BP

PATIENT
  Sex: Male

DRUGS (3)
  1. SPIRIVA [Suspect]
     Indication: EMPHYSEMA
     Dosage: 18 MCG
     Route: 055
  2. CARTIA XT [Concomitant]
     Indication: HYPERTENSION
  3. ADVAIR HFA [Concomitant]
     Indication: EMPHYSEMA

REACTIONS (5)
  - ASTHENIA [None]
  - CARDIOVASCULAR DISORDER [None]
  - CHEST X-RAY ABNORMAL [None]
  - DYSPNOEA [None]
  - NASOPHARYNGITIS [None]
